FAERS Safety Report 25987327 (Version 1)
Quarter: 2025Q4

REPORT INFORMATION
  Report Type: Spontaneous
  Country: US (occurrence: US)
  Receive Date: 20251103
  Receipt Date: 20251103
  Transmission Date: 20260117
  Serious: Yes (Other)
  Sender: ALKEM
  Company Number: None

PATIENT
  Age: 75 Year
  Sex: Female

DRUGS (2)
  1. IBUPROFEN [Suspect]
     Active Substance: IBUPROFEN
     Indication: Dermatomyositis
     Dosage: 1200 MILLIGRAM, QD, EVERY 1 DAY
     Route: 065
  2. IBUPROFEN [Suspect]
     Active Substance: IBUPROFEN
     Dosage: 800 MILLIGRAM, QD, EVERY 1 DAY
     Route: 065

REACTIONS (2)
  - Haematemesis [Recovered/Resolved]
  - Duodenal ulcer [Recovered/Resolved]
